FAERS Safety Report 9609209 (Version 2)
Quarter: 2014Q1

REPORT INFORMATION
  Report Type: Spontaneous
  Country: US (occurrence: US)
  Receive Date: 20131009
  Receipt Date: 20140304
  Transmission Date: 20141002
  Serious: Yes (Other)
  Sender: FDA-Public Use
  Company Number: US-TEVA-437037USA

PATIENT
  Age: 26 Year
  Sex: Female

DRUGS (2)
  1. PARAGARD 380A [Suspect]
     Indication: CONTRACEPTION
     Route: 015
     Dates: start: 20130826, end: 20130930
  2. PARAGARD 380A [Suspect]
     Route: 015
     Dates: start: 20131021

REACTIONS (4)
  - Device dislocation [Recovered/Resolved]
  - Muscle spasms [Unknown]
  - Pelvic pain [Recovered/Resolved]
  - Dyspareunia [Recovered/Resolved]
